FAERS Safety Report 8287970-9 (Version None)
Quarter: 2012Q2

REPORT INFORMATION
  Report Type: 
  Country: None (occurrence: None)
  Receive Date: 20120411
  Receipt Date: 20120411
  Transmission Date: 20120825
  Serious: Yes (Other)
  Sender: FDA-Public Use
  Company Number: None

PATIENT
  Age: 46 Year
  Sex: Female
  Weight: 59.9 kg

DRUGS (15)
  1. LORAZEPAM [Concomitant]
  2. CHOLECALCIFEROL [Concomitant]
  3. ERGOCALCIFEROL [Concomitant]
  4. PREDNISONE [Concomitant]
  5. BACTRIM [Concomitant]
  6. OXYCODONE HCL [Concomitant]
  7. PROLEUKIN [Suspect]
     Indication: CHRONIC GRAFT VERSUS HOST DISEASE
     Dosage: 1.0X10^6 IU/M^2 ONCE DAILY SUBCUTANEOUS INJECTION
     Route: 058
     Dates: start: 20120214, end: 20120327
  8. ACYCLOVIR [Concomitant]
  9. AMBIEN [Concomitant]
  10. OXYCONTIN [Concomitant]
  11. LEVOTHYROXINE SODIUM [Concomitant]
  12. TACROLIMUS [Concomitant]
  13. VORICONAZOLE [Concomitant]
  14. FOLIC ACID [Concomitant]
  15. ZYPREXA [Concomitant]

REACTIONS (3)
  - GRAFT VERSUS HOST DISEASE [None]
  - BLOOD GLUCOSE INCREASED [None]
  - GRAFT VERSUS HOST DISEASE IN LIVER [None]
